FAERS Safety Report 5094607-9 (Version None)
Quarter: 2006Q3

REPORT INFORMATION
  Report Type: 
  Country: None (occurrence: None)
  Receive Date: 20060830
  Receipt Date: 20060814
  Transmission Date: 20061208
  Serious: Yes (Hospitalization, Other)
  Sender: FDA-Public Use
  Company Number: US200608003329

PATIENT
  Sex: Male
  Weight: 104.3 kg

DRUGS (9)
  1. ZYPREXA [Suspect]
     Dates: start: 20000101, end: 20040101
  2. ATENOLOL [Concomitant]
  3. MINIMS PREDNISONE (PREDNISOLONE SODIUM PHOSPHATE) [Concomitant]
  4. HYDROCHLORZIDE (HYDROCHLOROTHIAZIDE) [Concomitant]
  5. DOXEPIN HCL [Concomitant]
  6. FLUOXETINE HCL [Concomitant]
  7. MIRTAZAPINE [Concomitant]
  8. NEFAZODONE HCL [Concomitant]
  9. SERTRALINE [Concomitant]

REACTIONS (19)
  - BILIARY TRACT DISORDER [None]
  - BLOOD CHOLESTEROL ABNORMAL [None]
  - BLOOD TRIGLYCERIDES INCREASED [None]
  - CARDIAC DISORDER [None]
  - CEREBROVASCULAR DISORDER [None]
  - CHOLELITHIASIS [None]
  - CONVULSION [None]
  - DIABETES MELLITUS [None]
  - DIABETIC COMA [None]
  - DIABETIC KETOACIDOSIS [None]
  - HYPERGLYCAEMIA [None]
  - HYPERINSULINISM [None]
  - HYPERTENSION [None]
  - HYPOGLYCAEMIA [None]
  - MUMPS [None]
  - MYOCARDIAL ISCHAEMIA [None]
  - POLYURIA [None]
  - VISION BLURRED [None]
  - WEIGHT DECREASED [None]
